FAERS Safety Report 7315645-9 (Version None)
Quarter: 2011Q1

REPORT INFORMATION
  Report Type: 
  Country: None (occurrence: None)
  Receive Date: 20110225
  Receipt Date: 20110214
  Transmission Date: 20110831
  Serious: Yes (Hospitalization)
  Sender: FDA-Public Use
  Company Number: PHHY2011GB11512

PATIENT
  Age: 84 Year
  Sex: Female
  Weight: 62 kg

DRUGS (4)
  1. DIAZEPAM [Suspect]
     Indication: ANXIETY
     Dosage: 2 MG, UNK
     Route: 048
     Dates: start: 20101018
  2. BUPRENORPHINE [Suspect]
     Indication: SPINAL FRACTURE
     Dosage: 10 UG, UNK (PER HOUR)
     Route: 062
     Dates: start: 20101213, end: 20110125
  3. ADCAL-D3 [Concomitant]
     Dosage: 2 DF, QD
  4. RANITIDINE [Concomitant]
     Dosage: 150 MG, BID
     Route: 048

REACTIONS (1)
  - DYSPNOEA [None]
